FAERS Safety Report 20860815 (Version 1)
Quarter: 2022Q2

REPORT INFORMATION
  Report Type: Spontaneous
  Country: US (occurrence: None)
  Receive Date: 20220521
  Receipt Date: 20220521
  Transmission Date: 20220721
  Serious: Yes (Hospitalization)
  Sender: FDA-Public Use
  Company Number: None

PATIENT
  Sex: Female
  Weight: 36.4 kg

DRUGS (1)
  1. CISPLATIN [Suspect]
     Active Substance: CISPLATIN
     Dates: end: 20170520

REACTIONS (6)
  - Oesophageal dilatation [None]
  - Oesophageal obstruction [None]
  - Oesophageal ulcer haemorrhage [None]
  - Eosinophilic oesophagitis [None]
  - Oesophageal mass [None]
  - Oesophageal stenosis [None]

NARRATIVE: CASE EVENT DATE: 20211229
